FAERS Safety Report 9282587 (Version 2)
Quarter: 2013Q2

REPORT INFORMATION
  Report Type: Spontaneous
  Country: CL (occurrence: CL)
  Receive Date: 20130510
  Receipt Date: 20130517
  Transmission Date: 20140414
  Serious: Yes (Hospitalization)
  Sender: FDA-Public Use
  Company Number: PHHY2013CL044292

PATIENT
  Age: 28 Year
  Sex: Female

DRUGS (3)
  1. LEPONEX [Suspect]
     Indication: DEPRESSION
     Dosage: 100 MG, QD
     Route: 048
  2. LEPONEX [Suspect]
     Indication: DEPRESSION
     Dosage: 200 MG, QD
     Route: 048
     Dates: start: 20130403
  3. LEPONEX [Suspect]
     Indication: OFF LABEL USE

REACTIONS (1)
  - Obsessive-compulsive disorder [Recovering/Resolving]
